FAERS Safety Report 19892780 (Version 2)
Quarter: 2021Q4

REPORT INFORMATION
  Report Type: Spontaneous
  Country: PH (occurrence: None)
  Receive Date: 20210929
  Receipt Date: 20211206
  Transmission Date: 20220303
  Serious: Yes (Other)
  Sender: FDA-Public Use
  Company Number: PH-ROCHE-2922897

PATIENT
  Age: 15 Year

DRUGS (1)
  1. ACTEMRA [Suspect]
     Active Substance: TOCILIZUMAB
     Indication: COVID-19
     Dosage: STRENGTH:200 MG/20 ML
     Route: 065

REACTIONS (4)
  - Ventricular fibrillation [Unknown]
  - Off label use [Unknown]
  - Product counterfeit [Unknown]
  - Infusion related reaction [Unknown]
